FAERS Safety Report 16528575 (Version 1)
Quarter: 2019Q3

REPORT INFORMATION
  Report Type: Spontaneous
  Country: US (occurrence: US)
  Receive Date: 20190703
  Receipt Date: 20190703
  Transmission Date: 20191004
  Serious: No
  Sender: FDA-Public Use
  Company Number: US-TEVA-2019-US-1065893

PATIENT
  Sex: Male

DRUGS (1)
  1. FLUTICASONE PROPIONATE/SALMETEROL XINOFOATE [Suspect]
     Active Substance: FLUTICASONE PROPIONATE\SALMETEROL XINAFOATE
     Dosage: FLUTICASONE PROPIONATE 55MCG / SALMETEROL XINOFOATE 14MCG
     Route: 065

REACTIONS (2)
  - Device issue [Unknown]
  - Drug ineffective [Unknown]
